FAERS Safety Report 10678371 (Version 3)
Quarter: 2015Q1

REPORT INFORMATION
  Report Type: Report from Study
  Country: GB (occurrence: GB)
  Receive Date: 20141229
  Receipt Date: 20150120
  Transmission Date: 20150720
  Serious: Yes (Other)
  Sender: FDA-Public Use
  Company Number: GB-JNJFOC-20140908112

PATIENT
  Sex: Female

DRUGS (1)
  1. SIMPONI [Suspect]
     Active Substance: GOLIMUMAB
     Indication: PRODUCT USED FOR UNKNOWN INDICATION
     Route: 058

REACTIONS (13)
  - Oedema peripheral [Not Recovered/Not Resolved]
  - Thyroid disorder [Unknown]
  - Lower respiratory tract infection [Recovered/Resolved]
  - Asthenia [Unknown]
  - Diarrhoea [Unknown]
  - Ear infection [Not Recovered/Not Resolved]
  - Discomfort [Unknown]
  - Weight decreased [Unknown]
  - Pain [Unknown]
  - Synovial cyst [Recovering/Resolving]
  - Mass [Unknown]
  - Malaise [Unknown]
  - Sinusitis [Not Recovered/Not Resolved]
